FAERS Safety Report 23215412 (Version 2)
Quarter: 2023Q4

REPORT INFORMATION
  Report Type: Other
  Country: CN (occurrence: CN)
  Receive Date: 20231122
  Receipt Date: 20231128
  Transmission Date: 20240110
  Serious: Yes (Hospitalization, Other)
  Sender: FDA-Public Use
  Company Number: CN-DENTSPLY-2023SCDP000392

PATIENT
  Age: 54 Year
  Sex: Male

DRUGS (2)
  1. LIDOCAINE [Suspect]
     Active Substance: LIDOCAINE
     Indication: Anaesthesia eye
     Dosage: 1 DOSAGE FORM TOTAL LIDOCAINE 0.5%
  2. CEFUROXIME SODIUM [Suspect]
     Active Substance: CEFUROXIME SODIUM
     Indication: Antibiotic therapy
     Dosage: 0.05 MILLILITER TOTAL OF 1 MG/0.1ML APROKAM (ONE INJECTION)

REACTIONS (3)
  - Retinal degeneration [None]
  - Blindness [None]
  - Retinopathy [None]

NARRATIVE: CASE EVENT DATE: 20220101
